FAERS Safety Report 6759422-6 (Version None)
Quarter: 2010Q2

REPORT INFORMATION
  Report Type: 
  Country: None (occurrence: None)
  Receive Date: 20100603
  Receipt Date: 20100519
  Transmission Date: 20101027
  Serious: No
  Sender: FDA-Public Use
  Company Number: TPA2010A03017

PATIENT
  Sex: Female

DRUGS (1)
  1. PREVACID [Suspect]
     Indication: GASTROOESOPHAGEAL REFLUX DISEASE
     Dosage: PER ORAL
     Route: 048

REACTIONS (6)
  - DIPLOPIA [None]
  - DIZZINESS [None]
  - NAUSEA [None]
  - NERVOUS SYSTEM DISORDER [None]
  - PRURITUS [None]
  - RASH [None]
